FAERS Safety Report 15004670 (Version 1)
Quarter: 2018Q2

REPORT INFORMATION
  Report Type: Spontaneous
  Country: NL (occurrence: NL)
  Receive Date: 20180613
  Receipt Date: 20180613
  Transmission Date: 20180711
  Serious: Yes (Other)
  Sender: FDA-Public Use
  Company Number: NL-B.I. PHARMACEUTICALS,INC./RIDGEFIELD-2018-BI-029840

PATIENT
  Age: 62 Year
  Sex: Male

DRUGS (2)
  1. GILOTRIF [Suspect]
     Active Substance: AFATINIB
     Indication: LUNG ADENOCARCINOMA
     Route: 065
     Dates: start: 201510
  2. GILOTRIF [Suspect]
     Active Substance: AFATINIB
     Indication: METASTASES TO BONE

REACTIONS (6)
  - Therapy partial responder [Unknown]
  - Facial paralysis [Unknown]
  - Metastases to central nervous system [Unknown]
  - Malignant neoplasm progression [Unknown]
  - Rash [Unknown]
  - EGFR gene mutation [Unknown]
